FAERS Safety Report 7762130-6 (Version None)
Quarter: 2011Q3

REPORT INFORMATION
  Report Type: 
  Country: None (occurrence: None)
  Receive Date: 20110920
  Receipt Date: 20110909
  Transmission Date: 20111222
  Serious: No
  Sender: FDA-Public Use
  Company Number: US-JNJFOC-20110905509

PATIENT
  Sex: Female

DRUGS (20)
  1. SPIRONOLACTONE [Concomitant]
     Indication: FLUID RETENTION
     Route: 048
     Dates: start: 20060601
  2. WELLBUTRIN [Concomitant]
     Indication: DEPRESSION
     Route: 048
     Dates: start: 20060601
  3. NORCO [Concomitant]
     Indication: PAIN
     Route: 048
     Dates: start: 20060601
  4. XOPENEX [Concomitant]
     Indication: ASTHMA
     Route: 048
     Dates: start: 20060601
  5. POTASSIUM ACETATE [Concomitant]
     Indication: ELECTROLYTE SUBSTITUTION THERAPY
     Route: 048
     Dates: start: 20060601
  6. NEXIUM [Concomitant]
     Indication: GASTROOESOPHAGEAL REFLUX DISEASE
     Route: 048
     Dates: start: 20040101
  7. SINGULAIR [Concomitant]
     Indication: MULTIPLE ALLERGIES
     Route: 048
  8. LASIX [Concomitant]
     Indication: FLUID RETENTION
     Route: 048
     Dates: start: 20060601
  9. ADVAIR DISKUS 100/50 [Concomitant]
     Indication: RESPIRATORY DISORDER
     Route: 048
     Dates: start: 20060601
  10. LIDODERM [Concomitant]
     Indication: PAIN
     Route: 062
     Dates: start: 20060601
  11. SYNTHROID [Concomitant]
     Indication: THYROID DISORDER
     Route: 048
     Dates: start: 20080201
  12. LORAZEPAM [Concomitant]
     Indication: ANXIETY
     Route: 048
     Dates: start: 20060601
  13. GABAPENTIN [Concomitant]
     Dosage: UNTIL 8 PM
     Route: 048
  14. NAPROXEN [Concomitant]
     Indication: GUILLAIN-BARRE SYNDROME
     Route: 048
     Dates: start: 20100801
  15. SOMA [Concomitant]
     Indication: MUSCLE RELAXANT THERAPY
     Route: 048
     Dates: start: 20060601
  16. OXYCONTIN [Concomitant]
     Indication: PAIN
     Route: 048
     Dates: start: 20060601
  17. DURAGESIC-100 [Suspect]
     Indication: PAIN
     Route: 062
     Dates: start: 20100801
  18. GABAPENTIN [Concomitant]
     Indication: GUILLAIN-BARRE SYNDROME
     Route: 048
  19. STOOL SOFTENER [Concomitant]
     Indication: ABNORMAL FAECES
     Route: 048
     Dates: start: 20060601
  20. SPIRIVA [Concomitant]
     Indication: LUNG DISORDER
     Route: 048
     Dates: start: 20060601

REACTIONS (2)
  - PRODUCT ADHESION ISSUE [None]
  - WRONG TECHNIQUE IN DRUG USAGE PROCESS [None]
